FAERS Safety Report 14617553 (Version 1)
Quarter: 2018Q1

REPORT INFORMATION
  Report Type: Spontaneous
  Country: FR (occurrence: FR)
  Receive Date: 20180309
  Receipt Date: 20180309
  Transmission Date: 20180509
  Serious: Yes (Hospitalization)
  Sender: FDA-Public Use
  Company Number: FR-009507513-1803FRA001800

PATIENT
  Sex: Female
  Weight: 43 kg

DRUGS (4)
  1. NEUPRO [Suspect]
     Active Substance: ROTIGOTINE
     Indication: PARKINSON^S DISEASE
     Dosage: PATCH
  2. SINEMET [Suspect]
     Active Substance: CARBIDOPA\LEVODOPA
     Indication: PARKINSON^S DISEASE
     Dosage: 8 TABLETS DAILY
     Dates: start: 201709
  3. SINEMET [Suspect]
     Active Substance: CARBIDOPA\LEVODOPA
     Dosage: 4 TABLETS DAILY
     Route: 048
  4. MODOPAR [Suspect]
     Active Substance: BENSERAZIDE HYDROCHLORIDE\LEVODOPA

REACTIONS (5)
  - General physical health deterioration [Unknown]
  - Weight decreased [Unknown]
  - Product availability issue [Unknown]
  - Adverse event [Unknown]
  - Drug intolerance [Unknown]

NARRATIVE: CASE EVENT DATE: 2017
